FAERS Safety Report 16779988 (Version 6)
Quarter: 2021Q3

REPORT INFORMATION
  Report Type: Spontaneous
  Country: US (occurrence: US)
  Receive Date: 20190906
  Receipt Date: 20210923
  Transmission Date: 20211014
  Serious: Yes (Other)
  Sender: FDA-Public Use
  Company Number: US-GILEAD-2019-0426533

PATIENT
  Age: 51 Year
  Sex: Female
  Weight: 54.42 kg

DRUGS (22)
  1. ATRIPLA [Suspect]
     Active Substance: EFAVIRENZ\EMTRICITABINE\TENOFOVIR DISOPROXIL FUMARATE
     Indication: HIV INFECTION
     Dosage: UNK
     Route: 048
     Dates: start: 201501, end: 201612
  2. ASPIRIN (E.C.) [Concomitant]
     Active Substance: ASPIRIN
  3. NAPROXEN. [Concomitant]
     Active Substance: NAPROXEN
  4. PROZAC [Concomitant]
     Active Substance: FLUOXETINE HYDROCHLORIDE
  5. ODEFSEY [Concomitant]
     Active Substance: EMTRICITABINE\RILPIVIRINE HYDROCHLORIDE\TENOFOVIR ALAFENAMIDE FUMARATE
  6. DICLOFENAC [Concomitant]
     Active Substance: DICLOFENAC
  7. ATRIPLA [Suspect]
     Active Substance: EFAVIRENZ\EMTRICITABINE\TENOFOVIR DISOPROXIL FUMARATE
     Dosage: UNK
     Route: 048
     Dates: start: 201301, end: 201612
  8. MELOXICAM. [Concomitant]
     Active Substance: MELOXICAM
     Dosage: UNK
     Dates: start: 20170724
  9. ZOLOFT [Concomitant]
     Active Substance: SERTRALINE HYDROCHLORIDE
  10. BACTRIM [Concomitant]
     Active Substance: SULFAMETHOXAZOLE\TRIMETHOPRIM
  11. TRUVADA [Suspect]
     Active Substance: EMTRICITABINE\TENOFOVIR DISOPROXIL FUMARATE
     Indication: HIV INFECTION
     Dosage: UNK
     Route: 048
     Dates: start: 201612, end: 201801
  12. VIRAMUNE [Concomitant]
     Active Substance: NEVIRAPINE
  13. IBUPROFEN. [Concomitant]
     Active Substance: IBUPROFEN
  14. METHAMPHETAMINE [METAMFETAMINE] [Concomitant]
     Active Substance: METHAMPHETAMINE
  15. TRUVADA [Suspect]
     Active Substance: EMTRICITABINE\TENOFOVIR DISOPROXIL FUMARATE
     Dosage: UNK
     Route: 048
     Dates: start: 2010, end: 201312
  16. KALETRA [Concomitant]
     Active Substance: LOPINAVIR\RITONAVIR
  17. MYLANTA [CALCIUM CARBONATE] [Concomitant]
     Active Substance: CALCIUM CARBONATE
  18. RIOPAN [PIROXICAM] [Concomitant]
     Active Substance: PIROXICAM
  19. MARIJUANA [Concomitant]
     Active Substance: CANNABIS SATIVA SUBSP. INDICA TOP
  20. TYLENOL [Concomitant]
     Active Substance: ACETAMINOPHEN
  21. TRUVADA [Suspect]
     Active Substance: EMTRICITABINE\TENOFOVIR DISOPROXIL FUMARATE
     Dosage: UNK
     Route: 065
     Dates: start: 2010, end: 201301
  22. PAXIL [Concomitant]
     Active Substance: PAROXETINE HYDROCHLORIDE

REACTIONS (10)
  - Foot fracture [Unknown]
  - Renal failure [Not Recovered/Not Resolved]
  - Economic problem [Unknown]
  - Multiple fractures [Not Recovered/Not Resolved]
  - Emotional distress [Recovered/Resolved]
  - Pain [Recovered/Resolved]
  - Anhedonia [Unknown]
  - Anxiety [Unknown]
  - Decreased activity [Not Recovered/Not Resolved]
  - Osteoporosis [Not Recovered/Not Resolved]

NARRATIVE: CASE EVENT DATE: 201701
